FAERS Safety Report 13015522 (Version 1)
Quarter: 2016Q4

REPORT INFORMATION
  Report Type: Spontaneous
  Country: US (occurrence: US)
  Receive Date: 20161212
  Receipt Date: 20161212
  Transmission Date: 20170207
  Serious: No
  Sender: FDA-Public Use
  Company Number: US-AMGEN-USASP2016172491

PATIENT
  Age: 60 Year
  Sex: Female

DRUGS (4)
  1. DAPSONE. [Concomitant]
     Active Substance: DAPSONE
     Dosage: 75 MG, QD
  2. AZATHIOPRINE SODIUM. [Concomitant]
     Active Substance: AZATHIOPRINE SODIUM
     Dosage: 150 MG, QD
  3. AZATHIOPRINE SODIUM. [Concomitant]
     Active Substance: AZATHIOPRINE SODIUM
     Dosage: 100 MG, BID
  4. ENBREL [Suspect]
     Active Substance: ETANERCEPT
     Indication: MUCOUS MEMBRANE DISORDER
     Dosage: 25 MG, 2 TIMES/WK
     Route: 058

REACTIONS (6)
  - Drug dose omission [Unknown]
  - Gingival erosion [Unknown]
  - Trichiasis [Unknown]
  - Myalgia [Unknown]
  - Oral mucosa erosion [Recovered/Resolved]
  - Off label use [Unknown]
